FAERS Safety Report 5255770-X (Version None)
Quarter: 2007Q1

REPORT INFORMATION
  Report Type: 
  Country: None (occurrence: None)
  Receive Date: 20070305
  Receipt Date: 20070223
  Transmission Date: 20070707
  Serious: Yes (Other)
  Sender: FDA-Public Use
  Company Number: AU-PFIZER INC-2007015541

PATIENT
  Sex: Male

DRUGS (1)
  1. DIFLUCAN [Suspect]
     Indication: MENINGITIS CRYPTOCOCCAL

REACTIONS (4)
  - DRUG LEVEL INCREASED [None]
  - HAEMOLYSIS [None]
  - NEUROLOGICAL SYMPTOM [None]
  - RENAL FAILURE [None]
